FAERS Safety Report 20827709 (Version 2)
Quarter: 2022Q2

REPORT INFORMATION
  Report Type: Report from Study
  Country: BR (occurrence: BR)
  Receive Date: 20220513
  Receipt Date: 20220524
  Transmission Date: 20220720
  Serious: Yes (Hospitalization)
  Sender: FDA-Public Use
  Company Number: BR-NOVARTISPH-NVSC2022BR108314

PATIENT
  Age: 75 Year
  Sex: Male
  Weight: 65 kg

DRUGS (5)
  1. ENTRESTO [Suspect]
     Active Substance: SACUBITRIL\VALSARTAN
     Indication: Cardiac disorder
     Dosage: 1 DOSAGE FORM, BID (ONE TABLET) (50 MG)
     Route: 048
     Dates: start: 202202
  2. DAPAGLIFLOZIN [Concomitant]
     Active Substance: DAPAGLIFLOZIN
     Indication: Cardiac disorder
     Dosage: 1 DOSAGE FORM, QD (ONE TABLET)
     Route: 048
     Dates: start: 202202
  3. EFFIENT [Concomitant]
     Active Substance: PRASUGREL HYDROCHLORIDE
     Indication: Cardiac disorder
     Dosage: 1 DOSAGE FORM, QD (ONE TABLET)
     Route: 048
     Dates: start: 202202
  4. ASPIRIN\DIHYDROXYALUMINUM AMINOACETATE ANHYDROUS\MAGNESIUM CARBONATE [Concomitant]
     Active Substance: ASPIRIN\DIHYDROXYALUMINUM AMINOACETATE ANHYDROUS\MAGNESIUM CARBONATE
     Indication: Blood disorder
     Dosage: 1 DOSAGE FORM, QD (ONE TABLET)
     Route: 048
     Dates: start: 202202
  5. NEXIUM [Concomitant]
     Active Substance: ESOMEPRAZOLE MAGNESIUM
     Indication: Cardiac disorder
     Dosage: 1 DOSAGE FORM, BID (ONE TABLET)
     Route: 048
     Dates: start: 202202

REACTIONS (1)
  - Prostatic haemorrhage [Recovering/Resolving]

NARRATIVE: CASE EVENT DATE: 20220401
